FAERS Safety Report 8960388 (Version 1)
Quarter: 2012Q4

REPORT INFORMATION
  Report Type: 
  Country: US (occurrence: US)
  Receive Date: 20121211
  Receipt Date: 20121211
  Transmission Date: 20130627
  Serious: Yes (Death, Other)
  Sender: FDA-Public Use
  Company Number: CHPA2012US025094

PATIENT
  Sex: Male

DRUGS (1)
  1. MAALOX UNKNOWN [Suspect]
     Dosage: Unk, Unk
     Route: 048

REACTIONS (2)
  - Death [Fatal]
  - T-cell lymphoma [Unknown]
